FAERS Safety Report 17542176 (Version 2)
Quarter: 2020Q2

REPORT INFORMATION
  Report Type: Spontaneous
  Country: US (occurrence: US)
  Receive Date: 20200313
  Receipt Date: 20200402
  Transmission Date: 20200713
  Serious: No
  Sender: FDA-Public Use
  Company Number: US-VERTEX PHARMACEUTICALS-2020-003805

PATIENT
  Age: 17 Year
  Sex: Female
  Weight: 49 kg

DRUGS (11)
  1. ZYRTEC [Concomitant]
     Active Substance: CETIRIZINE HYDROCHLORIDE
     Dosage: UNK
  2. TRIKAFTA [Suspect]
     Active Substance: ELEXACAFTOR\IVACAFTOR\TEZACAFTOR
     Indication: CYSTIC FIBROSIS
     Dosage: 100MG ELEXACAFTOR/50MG TEZACAFTOR/75MG IVACAFTOR AM AND 150MG IVACAFTOR PM
     Route: 048
     Dates: start: 20200121
  3. FISH OIL [Concomitant]
     Active Substance: FISH OIL
     Dosage: UNK
  4. COQ10 [UBIDECARENONE] [Concomitant]
     Active Substance: UBIDECARENONE
     Dosage: UNK
  5. CLARITIN [CLARITHROMYCIN] [Concomitant]
     Active Substance: CLARITHROMYCIN
  6. RIBOFLAVIN [Concomitant]
     Active Substance: RIBOFLAVIN
     Dosage: UNK
  7. MOTRIN [Concomitant]
     Active Substance: IBUPROFEN
     Dosage: UNK
  8. MUCINEX [Concomitant]
     Active Substance: GUAIFENESIN
     Dosage: UNK
  9. MAGNESIUM [Concomitant]
     Active Substance: MAGNESIUM
     Dosage: UNK
  10. CAYSTON [Concomitant]
     Active Substance: AZTREONAM
     Dosage: UNK, BID
     Route: 055
  11. TYLENOL [Concomitant]
     Active Substance: ACETAMINOPHEN
     Dosage: UNK

REACTIONS (8)
  - Dyspepsia [Recovered/Resolved]
  - Anxiety [Unknown]
  - Viral infection [Recovering/Resolving]
  - Gastrooesophageal reflux disease [Recovered/Resolved]
  - Oropharyngeal pain [Recovered/Resolved]
  - Cough [Recovered/Resolved]
  - Nausea [Unknown]
  - Paranasal sinus hypersecretion [Recovered/Resolved]

NARRATIVE: CASE EVENT DATE: 20200121
